FAERS Safety Report 7704106-0 (Version None)
Quarter: 2011Q3

REPORT INFORMATION
  Report Type: 
  Country: None (occurrence: None)
  Receive Date: 20110818
  Receipt Date: 20110803
  Transmission Date: 20111222
  Serious: Yes (Life-Threatening)
  Sender: FDA-Public Use
  Company Number: 2011S1000254

PATIENT
  Sex: Male

DRUGS (2)
  1. INOMAX [Suspect]
  2. INOMAX [Suspect]
     Indication: HYPOXIA

REACTIONS (3)
  - DEVICE FAILURE [None]
  - OXYGEN SATURATION DECREASED [None]
  - CARDIO-RESPIRATORY ARREST [None]
